FAERS Safety Report 8514573 (Version 3)
Quarter: 2013Q2

REPORT INFORMATION
  Report Type: Spontaneous
  Country: US (occurrence: US)
  Receive Date: 20120416
  Receipt Date: 20130401
  Transmission Date: 20140414
  Serious: Yes (Death, Hospitalization)
  Sender: FDA-Public Use
  Company Number: US-GLAXOSMITHKLINE-A0951801A

PATIENT
  Age: 49 Year
  Sex: Female

DRUGS (4)
  1. FLOLAN [Suspect]
     Indication: PULMONARY ARTERIAL HYPERTENSION
     Dosage: 46NGKM SEE DOSAGE TEXT
     Route: 065
     Dates: start: 20061024
  2. ADCIRCA [Concomitant]
     Indication: PRODUCT USED FOR UNKNOWN INDICATION
     Dosage: 40MG PER DAY
     Route: 065
  3. SODIUM THIOSULFATE [Concomitant]
     Indication: PRODUCT USED FOR UNKNOWN INDICATION
     Route: 065
  4. LETAIRIS [Concomitant]

REACTIONS (7)
  - Peritonitis [Unknown]
  - Renal failure [Unknown]
  - Death [Fatal]
  - Erythema [Unknown]
  - Eye irritation [Unknown]
  - Feeling hot [Unknown]
  - Nausea [Unknown]
